FAERS Safety Report 8863159 (Version 1)
Quarter: 2012Q4

REPORT INFORMATION
  Report Type: 
  Country: JP (occurrence: JP)
  Receive Date: 20121026
  Receipt Date: 20121026
  Transmission Date: 20130627
  Serious: Yes (Life-Threatening, Other)
  Sender: FDA-Public Use
  Company Number: JP-ROCHE-1146820

PATIENT

DRUGS (3)
  1. BEVACIZUMAB [Suspect]
     Indication: COLORECTAL CANCER METASTATIC
     Dosage: 30 to 90 min infusion
     Route: 050
  2. IRINOTECAN [Suspect]
     Indication: COLORECTAL CANCER METASTATIC
     Dosage: Infusion over 90 min
     Route: 050
  3. TEGAFUR [Suspect]
     Indication: COLORECTAL CANCER METASTATIC
     Dosage: Dose: 40mg, 50 mg or 60 mg
     Route: 050

REACTIONS (14)
  - Neutropenia [Unknown]
  - Hypertension [Unknown]
  - Arterial thrombosis [Unknown]
  - Leukopenia [Unknown]
  - Anaemia [Unknown]
  - Decreased appetite [Unknown]
  - Diarrhoea [Unknown]
  - Nausea [Unknown]
  - Fatigue [Unknown]
  - Hypoalbuminaemia [Unknown]
  - Hyperbilirubinaemia [Unknown]
  - Aspartate aminotransferase [Unknown]
  - Alanine aminotransferase [Unknown]
  - Vomiting [Unknown]
